FAERS Safety Report 25733126 (Version 2)
Quarter: 2025Q3

REPORT INFORMATION
  Report Type: Spontaneous
  Country: EU (occurrence: EU)
  Receive Date: 20250828
  Receipt Date: 20250923
  Transmission Date: 20251020
  Serious: Yes (Hospitalization)
  Sender: TEVA
  Company Number: EU-TEVA-VS-3365003

PATIENT
  Age: 32 Year
  Sex: Male

DRUGS (3)
  1. EVEROLIMUS [Suspect]
     Active Substance: EVEROLIMUS
     Indication: Immunosuppressant drug therapy
     Route: 065
  2. TACROLIMUS [Suspect]
     Active Substance: TACROLIMUS
     Indication: Immunosuppressant drug therapy
     Route: 065
  3. PREDNISOLONE [Suspect]
     Active Substance: PREDNISOLONE
     Indication: Immunosuppressant drug therapy
     Route: 065

REACTIONS (6)
  - Buschke-Lowenstein^s tumour [Recovering/Resolving]
  - Insomnia [Recovering/Resolving]
  - Activities of daily living decreased [Recovering/Resolving]
  - Chronic kidney disease [Recovering/Resolving]
  - Gait disturbance [Recovering/Resolving]
  - Nephropathy toxic [Recovering/Resolving]
